FAERS Safety Report 7994982-9 (Version None)
Quarter: 2011Q4

REPORT INFORMATION
  Report Type: 
  Country: None (occurrence: None)
  Receive Date: 20111220
  Receipt Date: 20111128
  Transmission Date: 20120403
  Serious: No
  Sender: FDA-Public Use
  Company Number: US-MYLANLABS-2011S1024563

PATIENT
  Sex: Female

DRUGS (1)
  1. DOXYCYCLINE HYCLATE [Suspect]
     Indication: ANTIINFLAMMATORY THERAPY
     Dosage: THREE TIMES A WEEK
     Route: 048
     Dates: start: 20111101, end: 20111125

REACTIONS (1)
  - ARRHYTHMIA [None]
